FAERS Safety Report 4841466-2 (Version None)
Quarter: 2005Q4

REPORT INFORMATION
  Report Type: 
  Country: None (occurrence: None)
  Receive Date: 20051130
  Receipt Date: 20050801
  Transmission Date: 20060501
  Serious: Yes (Hospitalization)
  Sender: FDA-Public Use
  Company Number: US-GLAXOSMITHKLINE-A0568498A

PATIENT
  Sex: Male

DRUGS (4)
  1. WELLBUTRIN [Suspect]
     Dosage: 300MG PER DAY
     Route: 048
     Dates: start: 20050301, end: 20050701
  2. LITHIUM [Concomitant]
  3. KLONOPIN [Concomitant]
  4. LOPRESSOR [Concomitant]

REACTIONS (1)
  - URTICARIA [None]
